FAERS Safety Report 23284370 (Version 2)
Quarter: 2023Q4

REPORT INFORMATION
  Report Type: Spontaneous
  Country: US (occurrence: US)
  Receive Date: 20231211
  Receipt Date: 20231219
  Transmission Date: 20240109
  Serious: No
  Sender: FDA-Public Use
  Company Number: US-PFIZER INC-202300433677

PATIENT
  Sex: Female

DRUGS (1)
  1. DESVENLAFAXINE SUCCINATE [Suspect]
     Active Substance: DESVENLAFAXINE SUCCINATE
     Dosage: 50MG TABLET ONCE A DAY BY MOUTH
     Route: 048

REACTIONS (3)
  - Epistaxis [Unknown]
  - Condition aggravated [Unknown]
  - Presyncope [Unknown]
